FAERS Safety Report 15716329 (Version 1)
Quarter: 2018Q4

REPORT INFORMATION
  Report Type: Report from Study
  Country: AU (occurrence: AU)
  Receive Date: 20181213
  Receipt Date: 20181213
  Transmission Date: 20190205
  Serious: Yes (Hospitalization)
  Sender: FDA-Public Use
  Company Number: AU-TOLMAR, INC.-2018AU012376

PATIENT

DRUGS (1)
  1. ELIGARD [Suspect]
     Active Substance: LEUPROLIDE ACETATE
     Indication: PROSTATE CANCER
     Dosage: 22.5 MG, Q3MONTHS
     Route: 058
     Dates: start: 20170703, end: 20171008

REACTIONS (6)
  - Gout [Unknown]
  - Diarrhoea [Unknown]
  - Loss of consciousness [Unknown]
  - Fall [Unknown]
  - Spinal fracture [Unknown]
  - Dehydration [Unknown]
